FAERS Safety Report 7568391-0 (Version None)
Quarter: 2011Q2

REPORT INFORMATION
  Report Type: 
  Country: None (occurrence: None)
  Receive Date: 20110623
  Receipt Date: 20110613
  Transmission Date: 20111010
  Serious: Yes (Hospitalization)
  Sender: FDA-Public Use
  Company Number: B0727456A

PATIENT
  Sex: Male

DRUGS (6)
  1. LUVION [Concomitant]
  2. LANOXIN [Suspect]
     Dosage: 1U PER DAY
     Route: 048
     Dates: start: 20060101, end: 20101202
  3. METFORMIN HCL [Concomitant]
  4. COUMADIN [Concomitant]
  5. RAMIPRIL [Concomitant]
  6. DIAMICRON [Concomitant]

REACTIONS (5)
  - CHEST PAIN [None]
  - OVERDOSE [None]
  - CARDIOACTIVE DRUG LEVEL INCREASED [None]
  - MYOCARDIAL INFARCTION [None]
  - ATRIAL FIBRILLATION [None]
